FAERS Safety Report 7686345-0 (Version None)
Quarter: 2011Q3

REPORT INFORMATION
  Report Type: 
  Country: None (occurrence: None)
  Receive Date: 20110816
  Receipt Date: 20110805
  Transmission Date: 20111222
  Serious: Yes (Other)
  Sender: FDA-Public Use
  Company Number: US-VIIV HEALTHCARE LIMITED-A0940952A

PATIENT
  Sex: Male
  Weight: 3.9 kg

DRUGS (5)
  1. RETROVIR [Suspect]
     Indication: ANTIRETROVIRAL THERAPY
     Dosage: 2MGKH PER DAY
     Route: 064
     Dates: start: 20110704, end: 20110704
  2. RETROVIR [Suspect]
     Indication: ANTIVIRAL TREATMENT
     Dosage: 1MGKH PER DAY
     Route: 064
     Dates: start: 20110704, end: 20110706
  3. COMBIVIR [Suspect]
     Indication: ANTIRETROVIRAL THERAPY
     Dosage: 2TAB PER DAY
     Route: 064
     Dates: start: 20110505
  4. KALETRA [Suspect]
     Indication: ANTIRETROVIRAL THERAPY
     Dosage: 4TAB PER DAY
     Route: 064
     Dates: start: 20110505
  5. ISENTRESS [Suspect]
     Indication: ANTIVIRAL TREATMENT
     Dosage: 800MGD PER DAY
     Route: 064
     Dates: start: 20110606

REACTIONS (2)
  - HYPOSPADIAS [None]
  - MATERNAL EXPOSURE DURING PREGNANCY [None]
